FAERS Safety Report 5870645-0 (Version None)
Quarter: 2008Q3

REPORT INFORMATION
  Report Type: 
  Country: None (occurrence: None)
  Receive Date: 20080904
  Receipt Date: 20080828
  Transmission Date: 20090109
  Serious: Yes (Other)
  Sender: FDA-Public Use
  Company Number: PHEH2008US06907

PATIENT
  Sex: Female
  Weight: 54.875 kg

DRUGS (15)
  1. RECLAST [Suspect]
     Indication: OSTEOPOROSIS
     Dosage: 5 MG/100ML ONCE PER YEAR
     Dates: start: 20080725
  2. AMBIEN [Concomitant]
     Dosage: 10 MG PRN
  3. ASPIRIN [Concomitant]
     Dosage: 81 MG DAILY
  4. BENICAR [Concomitant]
     Dosage: 40 MG
  5. CITRUCEL [Concomitant]
     Dosage: 150/62.5 MG QD
  6. VITAMIN D [Concomitant]
  7. NEURONTIN [Concomitant]
     Dosage: 300 MG QD
  8. NORVASC [Concomitant]
     Dosage: 10 MG QD
  9. LOVAZA [Concomitant]
     Dosage: 1000 MG QD
  10. MULTI-VITAMINS [Concomitant]
  11. PERCOCET [Concomitant]
     Dosage: 10/325 MG 4 TIMES DAILY AS NEEDED
  12. PRAVACHOL [Concomitant]
     Dosage: 40 MG  (1/2 QD)
  13. PRAVASTATIN SODIUM [Concomitant]
     Dosage: 20 MG HS
  14. ASCORBIC ACID [Concomitant]
     Dosage: 500 MG QD
  15. XANAX [Concomitant]
     Dosage: 0.5 MG PRN

REACTIONS (10)
  - BACK PAIN [None]
  - CHILLS [None]
  - CONDITION AGGRAVATED [None]
  - DYSPEPSIA [None]
  - FATIGUE [None]
  - HEADACHE [None]
  - HYPOAESTHESIA [None]
  - INFLUENZA LIKE ILLNESS [None]
  - NECK PAIN [None]
  - NEUROPATHY PERIPHERAL [None]
